FAERS Safety Report 8518379 (Version 3)
Quarter: 2013Q4

REPORT INFORMATION
  Report Type: Spontaneous
  Country: US (occurrence: US)
  Receive Date: 20120417
  Receipt Date: 20131129
  Transmission Date: 20140711
  Serious: No
  Sender: FDA-Public Use
  Company Number: US-ASTRAZENECA-2011SE50532

PATIENT
  Age: 59 Year
  Sex: Male
  Weight: 86.2 kg

DRUGS (5)
  1. NEXIUM [Suspect]
     Route: 048
  2. NEXIUM [Suspect]
     Dosage: TAKING ANOTHER ONE AT NIGHT
     Route: 048
  3. NEXIUM [Suspect]
     Route: 048
  4. SEROQUEL [Suspect]
     Indication: HALLUCINATION
     Route: 048
     Dates: start: 2007
  5. PROZAC [Concomitant]

REACTIONS (10)
  - Bowel movement irregularity [Unknown]
  - Micturition disorder [Unknown]
  - Gastrooesophageal reflux disease [Unknown]
  - Choking [Unknown]
  - Hallucination [Unknown]
  - Insomnia [Unknown]
  - Regurgitation [Unknown]
  - Tooth loss [Unknown]
  - Drug withdrawal syndrome [Unknown]
  - Intentional drug misuse [Unknown]
